FAERS Safety Report 12144032 (Version 2)
Quarter: 2018Q1

REPORT INFORMATION
  Report Type: Report from Study
  Country: CA (occurrence: CA)
  Receive Date: 20160304
  Receipt Date: 20180226
  Transmission Date: 20180508
  Serious: Yes (Other)
  Sender: FDA-Public Use
  Company Number: CA-ROCHE-1356521

PATIENT
  Age: 54 Year
  Sex: Female

DRUGS (11)
  1. ACTEMRA [Suspect]
     Active Substance: TOCILIZUMAB
     Indication: RHEUMATOID ARTHRITIS
     Route: 058
     Dates: start: 2015
  2. ADVIL [Concomitant]
     Active Substance: IBUPROFEN
  3. PREVACID [Concomitant]
     Active Substance: LANSOPRAZOLE
     Indication: RHEUMATOID ARTHRITIS
  4. SPIRONOLAKTON [Concomitant]
     Active Substance: SPIRONOLACTONE
  5. LASIX [Concomitant]
     Active Substance: FUROSEMIDE
  6. ORENCIA [Concomitant]
     Active Substance: ABATACEPT
  7. ACTEMRA [Suspect]
     Active Substance: TOCILIZUMAB
     Indication: RHEUMATOID ARTHRITIS
     Route: 042
     Dates: start: 20140220, end: 20150121
  8. REACTINE (CANADA) [Concomitant]
     Active Substance: CETIRIZINE HYDROCHLORIDE
  9. ACTEMRA [Suspect]
     Active Substance: TOCILIZUMAB
     Route: 058
     Dates: start: 2016
  10. WARFARIN [Concomitant]
     Active Substance: WARFARIN
  11. DIGOXIN. [Concomitant]
     Active Substance: DIGOXIN

REACTIONS (9)
  - Ebstein^s anomaly [Unknown]
  - Vascular fragility [Not Recovered/Not Resolved]
  - Rheumatoid arthritis [Unknown]
  - Oral herpes [Unknown]
  - Fatigue [Not Recovered/Not Resolved]
  - Exercise tolerance decreased [Not Recovered/Not Resolved]
  - Pruritus [Unknown]
  - Intercepted product storage error [Unknown]
  - Dyspnoea [Not Recovered/Not Resolved]

NARRATIVE: CASE EVENT DATE: 20140223
